FAERS Safety Report 17885064 (Version 1)
Quarter: 2020Q2

REPORT INFORMATION
  Report Type: Spontaneous
  Country: US (occurrence: US)
  Receive Date: 20200610
  Receipt Date: 20200610
  Transmission Date: 20200714
  Serious: No
  Sender: FDA-Public Use
  Company Number: None

PATIENT
  Age: 14 Year
  Sex: Male

DRUGS (1)
  1. TEMOZOLOMIDE 140MG  CAP [Suspect]
     Active Substance: TEMOZOLOMIDE
     Route: 048
     Dates: start: 2019

REACTIONS (3)
  - Constipation [None]
  - Pyrexia [None]
  - Neutropenia [None]

NARRATIVE: CASE EVENT DATE: 20200610
